FAERS Safety Report 5056411-7 (Version None)
Quarter: 2006Q3

REPORT INFORMATION
  Report Type: 
  Country: None (occurrence: None)
  Receive Date: 20060717
  Receipt Date: 20060626
  Transmission Date: 20061208
  Serious: Yes (Congenital Anomaly)
  Sender: FDA-Public Use
  Company Number: 6023765

PATIENT

DRUGS (1)
  1. ZACTIN (FLUOXETINE HYDROCHLORIDE) [Suspect]

REACTIONS (2)
  - DRUG EXPOSURE DURING PREGNANCY [None]
  - LIMB REDUCTION DEFECT [None]
